FAERS Safety Report 8789555 (Version 1)
Quarter: 2012Q4

REPORT INFORMATION
  Report Type: Spontaneous
  Country: US (occurrence: None)
  Receive Date: 20120905
  Receipt Date: 20120905
  Transmission Date: 20130627
  Serious: Yes (Other)
  Sender: FDA-Public Use
  Company Number: FK201202494

PATIENT
  Age: 46 Year
  Sex: Female

DRUGS (1)
  1. CYANOCOBALAMIN [Suspect]
     Indication: PRODUCT USED FOR UNKNOWN INDICATION
     Dosage: (not otherwise specified)
     Route: 042

REACTIONS (4)
  - Oropharyngeal swelling [None]
  - Flushing [None]
  - Tremor [None]
  - Rubber sensitivity [None]
